FAERS Safety Report 9265128 (Version 1)
Quarter: 2013Q2

REPORT INFORMATION
  Report Type: Spontaneous
  Country: FI (occurrence: None)
  Receive Date: 20130429
  Receipt Date: 20130429
  Transmission Date: 20140414
  Serious: Yes (Other)
  Sender: FDA-Public Use
  Company Number: SYM-2013-03082

PATIENT
  Age: 37 Year
  Sex: Female

DRUGS (3)
  1. VOXRA [Suspect]
     Indication: OBSESSIVE-COMPULSIVE DISORDER
     Route: 048
     Dates: start: 20130312, end: 20130330
  2. ARIPIPRAZOLE (ARIPIPRAZOLE) (ARIPIPRAZOLE) [Concomitant]
  3. CLOZAPINE (CLOZAPINE) (CLOZAPINE) [Concomitant]

REACTIONS (1)
  - Obsessive-compulsive disorder [None]
